FAERS Safety Report 24064712 (Version 1)
Quarter: 2024Q3

REPORT INFORMATION
  Report Type: Spontaneous
  Country: AU (occurrence: AU)
  Receive Date: 20240709
  Receipt Date: 20240709
  Transmission Date: 20241017
  Serious: Yes (Hospitalization, Other)
  Sender: PFIZER
  Company Number: AU-TAKEDA-2024TUS068994

PATIENT
  Age: 38 Year
  Sex: Female
  Weight: 63 kg

DRUGS (1)
  1. PANTOPRAZOLE [Suspect]
     Active Substance: PANTOPRAZOLE
     Indication: Gastrooesophageal reflux disease
     Dosage: UNK
     Route: 048
     Dates: end: 20240527

REACTIONS (5)
  - Hypomagnesaemia [Recovered/Resolved]
  - Cardiac flutter [Unknown]
  - Hypocalcaemia [Recovered/Resolved]
  - Muscle spasms [Unknown]
  - Paraesthesia oral [Unknown]
